FAERS Safety Report 20375139 (Version 2)
Quarter: 2022Q3

REPORT INFORMATION
  Report Type: Spontaneous
  Country: DE (occurrence: DE)
  Receive Date: 20220125
  Receipt Date: 20220713
  Transmission Date: 20221027
  Serious: Yes (Other)
  Sender: FDA-Public Use
  Company Number: DE-SA-SAC20220121001086

PATIENT

DRUGS (3)
  1. DUPILUMAB [Suspect]
     Active Substance: DUPILUMAB
     Indication: Neurodermatitis
  2. ATROPINE [Concomitant]
     Active Substance: ATROPINE
  3. CORTISONE [Concomitant]
     Active Substance: CORTISONE

REACTIONS (5)
  - Retinopathy [Not Recovered/Not Resolved]
  - Blindness [Not Recovered/Not Resolved]
  - Conjunctivitis [Recovered/Resolved]
  - Pain [Not Recovered/Not Resolved]
  - Vision blurred [Not Recovered/Not Resolved]

NARRATIVE: CASE EVENT DATE: 20211219
